FAERS Safety Report 8871329 (Version 1)
Quarter: 2012Q4

REPORT INFORMATION
  Report Type: 
  Country: US (occurrence: US)
  Receive Date: 20121029
  Receipt Date: 20121029
  Transmission Date: 20130627
  Serious: No
  Sender: FDA-Public Use
  Company Number: US-MYLANLABS-2012S1015292

PATIENT
  Age: 72 Year
  Sex: Female

DRUGS (3)
  1. CLONIDINE [Suspect]
     Indication: HYPERTENSION
     Dosage: changes every week
     Route: 062
     Dates: start: 201202, end: 2012
  2. COREG [Concomitant]
  3. BENICAR [Concomitant]

REACTIONS (3)
  - Application site erythema [Unknown]
  - Application site discolouration [Unknown]
  - Application site pruritus [Unknown]
